FAERS Safety Report 17969180 (Version 1)
Quarter: 2020Q3

REPORT INFORMATION
  Report Type: Spontaneous
  Country: US (occurrence: US)
  Receive Date: 20200701
  Receipt Date: 20200701
  Transmission Date: 20201103
  Serious: Yes (Other)
  Sender: FDA-Public Use
  Company Number: US-PFM-2020-01151

PATIENT
  Age: 9 Month
  Sex: Female

DRUGS (1)
  1. HEMANGEOL [Suspect]
     Active Substance: PROPRANOLOL HYDROCHLORIDE
     Indication: INFANTILE HAEMANGIOMA
     Dosage: 2.3 ML, BID (2/DAY), WITH FOOD
     Route: 048

REACTIONS (2)
  - Bronchiolitis [Unknown]
  - Staring [Unknown]

NARRATIVE: CASE EVENT DATE: 201912
